FAERS Safety Report 8012359-7 (Version None)
Quarter: 2011Q4

REPORT INFORMATION
  Report Type: 
  Country: None (occurrence: None)
  Receive Date: 20111228
  Receipt Date: 20111219
  Transmission Date: 20120403
  Serious: Yes (Hospitalization)
  Sender: FDA-Public Use
  Company Number: JP-AMGEN-JPNCT2011067293

PATIENT
  Age: 78 Year
  Sex: Male
  Weight: 47 kg

DRUGS (13)
  1. OXALIPLATIN [Suspect]
     Indication: LARGE INTESTINE CARCINOMA
     Dosage: 100 MG, Q2WK
     Route: 041
     Dates: start: 20090916, end: 20100317
  2. OXALIPLATIN [Suspect]
     Dosage: 100 MG, Q2WK
     Route: 041
     Dates: start: 20110816, end: 20111014
  3. FLUOROURACIL [Concomitant]
     Route: 041
     Dates: start: 20110816, end: 20111014
  4. LEVOLEUCOVORIN CALCIUM [Concomitant]
     Indication: LARGE INTESTINE CARCINOMA
     Route: 041
     Dates: start: 20090916, end: 20100317
  5. PANITUMUMAB [Suspect]
     Indication: COLORECTAL CANCER
     Dosage: UNK, Q2WK
     Route: 041
     Dates: start: 20110510, end: 20111206
  6. ERBITUX [Suspect]
     Indication: LARGE INTESTINE CARCINOMA
     Dosage: 400 MG, QWK
     Route: 041
     Dates: start: 20100805, end: 20110502
  7. CAMPTOSAR [Concomitant]
     Indication: LARGE INTESTINE CARCINOMA
     Route: 041
     Dates: start: 20100420, end: 20110805
  8. FLUOROURACIL [Concomitant]
     Route: 041
     Dates: start: 20100420, end: 20110805
  9. CAMPTOSAR [Concomitant]
     Route: 041
     Dates: start: 20111108, end: 20111122
  10. FLUOROURACIL [Concomitant]
     Indication: LARGE INTESTINE CARCINOMA
     Route: 041
     Dates: start: 20090916, end: 20100317
  11. LEVOLEUCOVORIN CALCIUM [Concomitant]
     Route: 041
     Dates: start: 20110816, end: 20111014
  12. TS 1 [Concomitant]
     Indication: LARGE INTESTINE CARCINOMA
     Route: 048
     Dates: start: 20111108, end: 20111122
  13. LEVOLEUCOVORIN CALCIUM [Concomitant]
     Route: 041
     Dates: start: 20100420, end: 20110805

REACTIONS (7)
  - STOMATITIS [None]
  - DIARRHOEA [None]
  - TETANY [None]
  - DECREASED APPETITE [None]
  - HYPOMAGNESAEMIA [None]
  - HYPOCALCAEMIA [None]
  - HYPOALBUMINAEMIA [None]
